FAERS Safety Report 7884325-3 (Version None)
Quarter: 2011Q4

REPORT INFORMATION
  Report Type: 
  Country: None (occurrence: None)
  Receive Date: 20111102
  Receipt Date: 20111026
  Transmission Date: 20120403
  Serious: Yes (Other)
  Sender: FDA-Public Use
  Company Number: FR-ROCHE-1006207

PATIENT
  Sex: Male

DRUGS (2)
  1. PEGASYS [Suspect]
     Indication: HEPATITIS C
     Dates: start: 20100401, end: 20110401
  2. COPEGUS [Suspect]
     Indication: HEPATITIS C
     Dates: start: 20100401, end: 20110401

REACTIONS (1)
  - MUSCLE SPASTICITY [None]
